FAERS Safety Report 10498868 (Version 6)
Quarter: 2020Q3

REPORT INFORMATION
  Report Type: Spontaneous
  Country: US (occurrence: US)
  Receive Date: 20141006
  Receipt Date: 20200826
  Transmission Date: 20201102
  Serious: Yes (Life-Threatening, Hospitalization, Other)
  Sender: FDA-Public Use
  Company Number: US-PFIZER INC-2014270796

PATIENT
  Age: 66 Year
  Sex: Female
  Weight: 77 kg

DRUGS (2)
  1. PHENYTOIN SODIUM. [Suspect]
     Active Substance: PHENYTOIN SODIUM
     Indication: SEIZURE
     Dosage: UNK
     Dates: start: 20181112
  2. PHENYTOIN SODIUM. [Suspect]
     Active Substance: PHENYTOIN SODIUM
     Dosage: 300 MG, 1X/DAY (THREE 100MG CAPSULES AT NIGHT)
     Route: 048

REACTIONS (5)
  - Malabsorption [Unknown]
  - Drug ineffective [Unknown]
  - Illness [Unknown]
  - Anticonvulsant drug level decreased [Unknown]
  - Drug hypersensitivity [Unknown]
